FAERS Safety Report 11185059 (Version 2)
Quarter: 2015Q2

REPORT INFORMATION
  Report Type: Spontaneous
  Country: RO (occurrence: RU)
  Receive Date: 20150612
  Receipt Date: 20150615
  Transmission Date: 20150821
  Serious: Yes (Death)
  Sender: FDA-Public Use
  Company Number: RO-PFIZER INC-2015195971

PATIENT
  Age: 28 Year
  Sex: Male

DRUGS (1)
  1. VIAGRA [Suspect]
     Active Substance: SILDENAFIL CITRATE
     Dosage: UNK
     Route: 048
     Dates: end: 2009

REACTIONS (2)
  - Myocardial infarction [Fatal]
  - Intentional overdose [Fatal]

NARRATIVE: CASE EVENT DATE: 2009
